FAERS Safety Report 5016480-7 (Version None)
Quarter: 2006Q2

REPORT INFORMATION
  Report Type: 
  Country: None (occurrence: None)
  Receive Date: 20060602
  Receipt Date: 20060503
  Transmission Date: 20061013
  Serious: Yes (Other)
  Sender: FDA-Public Use
  Company Number: PHEH2006US05876

PATIENT
  Age: 73 Year
  Sex: Male

DRUGS (1)
  1. EXJADE [Suspect]
     Indication: BLOOD IRON INCREASED
     Dosage: 2000 MG, QD
     Route: 048
     Dates: start: 20060201

REACTIONS (4)
  - HAEMATOCHEZIA [None]
  - MELAENA [None]
  - OCCULT BLOOD POSITIVE [None]
  - STOMACH DISCOMFORT [None]
